FAERS Safety Report 9678925 (Version 3)
Quarter: 2013Q4

REPORT INFORMATION
  Report Type: Spontaneous
  Country: US (occurrence: US)
  Receive Date: 20131108
  Receipt Date: 20131203
  Transmission Date: 20140711
  Serious: Yes (Death)
  Sender: FDA-Public Use
  Company Number: US-PFIZER INC-2013317392

PATIENT
  Age: 75 Year
  Sex: Female

DRUGS (1)
  1. VFEND [Suspect]
     Dosage: 50 MG, DAILY
     Dates: start: 20130802

REACTIONS (1)
  - Death [Fatal]
